FAERS Safety Report 7041927-4 (Version None)
Quarter: 2010Q4

REPORT INFORMATION
  Report Type: 
  Country: None (occurrence: None)
  Receive Date: 20101013
  Receipt Date: 20100726
  Transmission Date: 20110411
  Serious: No
  Sender: FDA-Public Use
  Company Number: US-ASTRAZENECA-2010SE34785

PATIENT
  Sex: Female
  Weight: 93 kg

DRUGS (4)
  1. SYMBICORT [Suspect]
     Indication: ASTHMA
     Dosage: 2 PUFFS, TWO TIMES IN A DAY
     Route: 055
     Dates: start: 20090701
  2. SINGULAIR [Concomitant]
  3. NASAL SPRAY [Concomitant]
  4. OMEPRAZOLE [Concomitant]

REACTIONS (2)
  - ASTHMA [None]
  - DRUG DOSE OMISSION [None]
